FAERS Safety Report 13689798 (Version 4)
Quarter: 2017Q3

REPORT INFORMATION
  Report Type: Spontaneous
  Country: HU (occurrence: HU)
  Receive Date: 20170626
  Receipt Date: 20170927
  Transmission Date: 20171127
  Serious: Yes (Death, Other)
  Sender: FDA-Public Use
  Company Number: HU-PFIZER INC-2017230747

PATIENT
  Age: 62 Year
  Sex: Male

DRUGS (2)
  1. INLYTA [Suspect]
     Active Substance: AXITINIB
     Indication: CLEAR CELL RENAL CELL CARCINOMA
     Dosage: 5 MG, 2X/DAY
     Route: 048
     Dates: start: 20170509
  2. INLYTA [Suspect]
     Active Substance: AXITINIB
     Dosage: 3 MG, 2X/DAY

REACTIONS (16)
  - Disorientation [Unknown]
  - Neoplasm progression [Fatal]
  - Mental impairment [Unknown]
  - Oesophageal pain [Unknown]
  - Gait inability [Unknown]
  - Dysphonia [Unknown]
  - Skin atrophy [Unknown]
  - Condition aggravated [Unknown]
  - Contusion [Unknown]
  - Oropharyngeal pain [Unknown]
  - Cough [Unknown]
  - Thyroxine decreased [Unknown]
  - Hypersomnia [Unknown]
  - Gait disturbance [Unknown]
  - Weight decreased [Unknown]
  - Odynophagia [Unknown]
